FAERS Safety Report 6147291-7 (Version None)
Quarter: 2009Q2

REPORT INFORMATION
  Report Type: 
  Country: None (occurrence: None)
  Receive Date: 20090408
  Receipt Date: 20090327
  Transmission Date: 20091009
  Serious: Yes (Hospitalization, Other)
  Sender: FDA-Public Use
  Company Number: US-WYE-H08742709

PATIENT
  Sex: Female
  Weight: 68.1 kg

DRUGS (2)
  1. EFFEXOR XR [Suspect]
     Indication: ANXIETY
     Dosage: UNKNOWN
     Route: 048
     Dates: start: 20070901
  2. XANAX [Concomitant]
     Dosage: UNKNOWN
     Route: 048

REACTIONS (6)
  - DIZZINESS [None]
  - GASTRITIS [None]
  - IMPAIRED DRIVING ABILITY [None]
  - IMPAIRED WORK ABILITY [None]
  - NAUSEA [None]
  - PALPITATIONS [None]
